FAERS Safety Report 5995110-1 (Version None)
Quarter: 2008Q4

REPORT INFORMATION
  Report Type: 
  Country: None (occurrence: None)
  Receive Date: 20081212
  Receipt Date: 20081204
  Transmission Date: 20090506
  Serious: Yes (Death)
  Sender: FDA-Public Use
  Company Number: US-PFIZER INC-2008151256

PATIENT
  Sex: Male

DRUGS (2)
  1. CADUET [Suspect]
  2. ACETYLSALICYLIC ACID [Suspect]

REACTIONS (1)
  - INFECTION [None]
